FAERS Safety Report 4852439-8 (Version None)
Quarter: 2005Q4

REPORT INFORMATION
  Report Type: 
  Country: None (occurrence: None)
  Receive Date: 20051130
  Receipt Date: 20050901
  Transmission Date: 20060501
  Serious: No
  Sender: FDA-Public Use
  Company Number: WAES 0506USA03817

PATIENT
  Age: 51 Year
  Sex: Female
  Weight: 87.9978 kg

DRUGS (6)
  1. ZETIA [Suspect]
     Indication: BLOOD CHOLESTEROL INCREASED
     Dosage: 10 MG/DAILY/PO
     Route: 048
     Dates: start: 20040901, end: 20040901
  2. LIPITOR [Concomitant]
  3. PRINIVIL [Concomitant]
  4. SOMA [Concomitant]
  5. [THERAPY UNSPECIFIED] [Concomitant]
  6. METFORMIN [Concomitant]

REACTIONS (2)
  - FATIGUE [None]
  - LETHARGY [None]
